FAERS Safety Report 7578017-8 (Version None)
Quarter: 2011Q2

REPORT INFORMATION
  Report Type: 
  Country: None (occurrence: None)
  Receive Date: 20110628
  Receipt Date: 20100721
  Transmission Date: 20111010
  Serious: No
  Sender: FDA-Public Use
  Company Number: US-PFIZER INC-2010092143

PATIENT
  Sex: Female
  Weight: 68.027 kg

DRUGS (3)
  1. CORTEF [Suspect]
     Indication: IMMUNE SYSTEM DISORDER
  2. CORTEF [Suspect]
     Indication: ADRENAL DISORDER
     Dosage: 5 MG, 1X/DAY
     Route: 048
     Dates: start: 20080101
  3. CORTEF [Suspect]
     Indication: FATIGUE

REACTIONS (1)
  - HEADACHE [None]
